FAERS Safety Report 7658995-9 (Version None)
Quarter: 2011Q3

REPORT INFORMATION
  Report Type: 
  Country: None (occurrence: None)
  Receive Date: 20110805
  Receipt Date: 20110725
  Transmission Date: 20111222
  Serious: Yes (Hospitalization)
  Sender: FDA-Public Use
  Company Number: DE-ELI_LILLY_AND_COMPANY-DE201106000212

PATIENT
  Sex: Female

DRUGS (3)
  1. CARBAMAZEPINE [Concomitant]
     Dosage: 600 MG, UNK
  2. ZYPREXA [Suspect]
     Indication: SCHIZOAFFECTIVE DISORDER DEPRESSIVE TYPE
     Dosage: 20 MG, UNK
     Route: 048
     Dates: start: 20100901, end: 20110411
  3. CITALOPRAM HYDROBROMIDE [Concomitant]
     Dosage: 40 MG, UNK

REACTIONS (1)
  - BLOOD CREATINE PHOSPHOKINASE INCREASED [None]
